FAERS Safety Report 14075161 (Version 1)
Quarter: 2017Q4

REPORT INFORMATION
  Report Type: Spontaneous
  Country: US (occurrence: US)
  Receive Date: 20171010
  Receipt Date: 20171010
  Transmission Date: 20180321
  Serious: Yes (Hospitalization, Other)
  Sender: FDA-Public Use
  Company Number: US-INTERCEPT-PMOCA2017000637

PATIENT

DRUGS (25)
  1. OCALIVA [Suspect]
     Active Substance: OBETICHOLIC ACID
     Indication: BILIARY CIRRHOSIS PRIMARY
     Dosage: 5 MG, QD
     Route: 048
     Dates: start: 20161231
  2. LEVOTHYROXIN [Concomitant]
     Active Substance: LEVOTHYROXINE
     Dosage: 25 MCG, QD
     Route: 048
     Dates: start: 20170322
  3. VITAMIN D                          /00107901/ [Concomitant]
     Active Substance: ERGOCALCIFEROL
     Dosage: 1 CAPSULE, QW
     Route: 048
     Dates: start: 20170703
  4. VENTOLIN HFA [Concomitant]
     Active Substance: ALBUTEROL SULFATE
     Dosage: 90 MCG, UNK
     Dates: start: 20170529
  5. PREDNISONE. [Concomitant]
     Active Substance: PREDNISONE
     Dosage: UNK
  6. XIFAXAN [Concomitant]
     Active Substance: RIFAXIMIN
     Dosage: 550 MG, BID
     Route: 048
     Dates: start: 20170703
  7. FUROSEMIDE. [Concomitant]
     Active Substance: FUROSEMIDE
     Dosage: 40 MG, UNK
     Dates: start: 20170703
  8. OXYCODONE [Concomitant]
     Active Substance: OXYCODONE
     Dosage: 5 MG, PRN
     Route: 048
     Dates: start: 20170604
  9. PROAIR HFA [Concomitant]
     Active Substance: ALBUTEROL SULFATE
     Dosage: UNK
  10. DOXYCYCLINE HYCLATE. [Concomitant]
     Active Substance: DOXYCYCLINE HYCLATE
     Dosage: UNK
  11. HYDROXYZINE HCL [Concomitant]
     Active Substance: HYDROXYZINE HYDROCHLORIDE
     Dosage: 25 MG, QD
     Dates: start: 20170322
  12. SPIRONOLACTON [Concomitant]
     Active Substance: SPIRONOLACTONE
     Dosage: 100 MG, QD
     Route: 048
     Dates: start: 20170703
  13. URSODIOL. [Concomitant]
     Active Substance: URSODIOL
     Dosage: 300 MG, TID
     Route: 048
  14. RANITIDINE. [Concomitant]
     Active Substance: RANITIDINE
     Dosage: 150 MG, BID
     Dates: start: 20170324
  15. SPIRONOLACTON [Concomitant]
     Active Substance: SPIRONOLACTONE
     Dosage: 25 MG, QD
     Route: 048
     Dates: start: 20170711, end: 20170908
  16. ZOLPIDEM [Concomitant]
     Active Substance: ZOLPIDEM\ZOLPIDEM TARTRATE
     Dosage: UNK
  17. VITAMIN A+D3 [Concomitant]
     Dosage: 1 CAPSULE, QMO
  18. GABAPENTIN. [Concomitant]
     Active Substance: GABAPENTIN
     Dosage: 100 MG, UNK
     Dates: start: 20170705
  19. SYMBICORT [Concomitant]
     Active Substance: BUDESONIDE\FORMOTEROL FUMARATE DIHYDRATE
     Dosage: 4.5 MCG, UNK
     Dates: start: 20170711
  20. CHRONULAC [Concomitant]
     Active Substance: LACTULOSE
     Dosage: 20 G, UNK
     Dates: start: 20170529, end: 20170908
  21. GENERLAC [Concomitant]
     Active Substance: LACTULOSE
     Dosage: 10 G, UNK
     Dates: start: 20170709, end: 20170908
  22. OMEGA-3 FATTY ACIDS [Concomitant]
     Active Substance: OMEGA-3 FATTY ACIDS
     Dosage: 1 G, UNK
     Route: 048
     Dates: start: 20170103
  23. WARFARIN [Concomitant]
     Active Substance: WARFARIN
     Dosage: 2.5 MG, QHS
     Route: 048
  24. VITAMIN A                          /00056001/ [Concomitant]
     Active Substance: RETINOL
     Dosage: 1 CAPSULE, QD
     Route: 048
     Dates: start: 20170703
  25. VITAMIN B COMPLEX [Concomitant]
     Active Substance: CYANOCOBALAMIN\DEXPANTHENOL\NIACINAMIDE\PYRIDOXINE HYDROCHLORIDE\RIBOFLAVIN 5^-PHOSPHATE SODIUM\THIAMINE HYDROCHLORIDE\VITAMIN B COMPLEX
     Dosage: UNK
     Dates: start: 20170529

REACTIONS (7)
  - Encephalopathy [Unknown]
  - Ascites [Unknown]
  - Oedema peripheral [Unknown]
  - Pruritus [Unknown]
  - Liver disorder [Unknown]
  - Hepatic failure [Unknown]
  - Drug dose omission [Unknown]

NARRATIVE: CASE EVENT DATE: 20170630
